FAERS Safety Report 10618006 (Version 2)
Quarter: 2014Q4

REPORT INFORMATION
  Report Type: Spontaneous
  Country: SK (occurrence: SK)
  Receive Date: 20141201
  Receipt Date: 20141201
  Transmission Date: 20150529
  Serious: Yes (Death)
  Sender: FDA-Public Use
  Company Number: SK-ROCHE-1494959

PATIENT
  Sex: Male

DRUGS (4)
  1. FLUOROURACIL. [Suspect]
     Active Substance: FLUOROURACIL
     Indication: COLON NEOPLASM
     Route: 065
     Dates: start: 200606
  2. LEUCOVORIN [Suspect]
     Active Substance: LEUCOVORIN
     Indication: COLON NEOPLASM
     Route: 065
     Dates: start: 200606
  3. BEVACIZUMAB [Suspect]
     Active Substance: BEVACIZUMAB
     Indication: COLON NEOPLASM
     Route: 065
     Dates: start: 200606, end: 201009
  4. IRINOTECAN [Suspect]
     Active Substance: IRINOTECAN
     Indication: COLON NEOPLASM
     Route: 065
     Dates: start: 200606, end: 201009

REACTIONS (2)
  - Disease progression [Fatal]
  - Proteinuria [Recovered/Resolved]

NARRATIVE: CASE EVENT DATE: 200708
